FAERS Safety Report 5671793-0 (Version None)
Quarter: 2008Q1

REPORT INFORMATION
  Report Type: 
  Country: None (occurrence: None)
  Receive Date: 20080314
  Receipt Date: 20080303
  Transmission Date: 20080703
  Serious: Yes (Other)
  Sender: FDA-Public Use
  Company Number: 234320K07USA

PATIENT
  Age: 28 Year
  Sex: Female

DRUGS (6)
  1. REBIF [Suspect]
     Indication: MULTIPLE SCLEROSIS
     Dosage: 44 MCG, 3 IN 1 WEEKS, SUBCUTANEOUS
     Route: 058
     Dates: start: 20060426, end: 20070526
  2. NEURONTIN [Suspect]
     Indication: MULTIPLE SCLEROSIS
     Dosage: 600 MG, 3 IN 1 WEEKS
     Dates: start: 20060101
  3. DITROPAN [Suspect]
     Indication: MULTIPLE SCLEROSIS
     Dosage: 5 MG,  1 IN 1 DAYS
     Dates: start: 20060101
  4. PROVIGIL [Suspect]
     Indication: FATIGUE
     Dosage: 100 MG, 2 IN 1 DAYS
     Dates: start: 20060101
  5. CRESTOR [Suspect]
     Indication: BLOOD CHOLESTEROL INCREASED
     Dosage: 10 MG, 1 IN 1 DAYS
     Dates: start: 20060101
  6. GLUCOVANCE [Suspect]
     Indication: DIABETES MELLITUS
     Dosage: 5 MG, 2 IN 1 DAYS
     Dates: start: 20020101

REACTIONS (4)
  - CAESAREAN SECTION [None]
  - DRUG EXPOSURE DURING PREGNANCY [None]
  - PREGNANCY [None]
  - PREMATURE BABY [None]
